FAERS Safety Report 5288854-0 (Version None)
Quarter: 2007Q2

REPORT INFORMATION
  Report Type: 
  Country: None (occurrence: None)
  Receive Date: 20070405
  Receipt Date: 20070328
  Transmission Date: 20071010
  Serious: Yes (Life-Threatening, Hospitalization, Other)
  Sender: FDA-Public Use
  Company Number: CA-GENENTECH-238572

PATIENT
  Age: 68 Year
  Sex: Female
  Weight: 80.8 kg

DRUGS (6)
  1. RITUXAN [Suspect]
     Indication: B-CELL LYMPHOMA
     Dosage: 690 MG, UNK
     Route: 042
     Dates: start: 20061216, end: 20070101
  2. CYCLOPHOSPHAMIDE [Concomitant]
     Indication: B-CELL LYMPHOMA
     Dosage: UNK, UNK
     Route: 042
     Dates: start: 20061217
  3. DOXORUBICIN HCL [Concomitant]
     Indication: B-CELL LYMPHOMA
     Dosage: UNK, UNK
     Route: 042
     Dates: start: 20061217
  4. VINCRISTINE [Concomitant]
     Indication: B-CELL LYMPHOMA
     Dosage: UNK, UNK
     Route: 042
     Dates: start: 20061217
  5. PREDNISONE [Concomitant]
     Indication: B-CELL LYMPHOMA
     Dosage: UNK, UNK
     Route: 048
     Dates: start: 20061217
  6. PRE-MEDICATIONS (UNK INGREDIENTS) [Concomitant]
     Indication: DRUG USE FOR UNKNOWN INDICATION

REACTIONS (6)
  - CARDIAC FAILURE [None]
  - GASTROINTESTINAL NECROSIS [None]
  - HEPATIC FAILURE [None]
  - NEUTROPENIA [None]
  - RENAL FAILURE ACUTE [None]
  - SEPTIC SHOCK [None]
